FAERS Safety Report 8081977-2 (Version None)
Quarter: 2012Q1

REPORT INFORMATION
  Report Type: 
  Country: None (occurrence: None)
  Receive Date: 20120130
  Receipt Date: 20110826
  Transmission Date: 20120608
  Serious: No
  Sender: FDA-Public Use
  Company Number: US-ABBOTT-11P-163-0850072-00

PATIENT
  Sex: Female
  Weight: 18.614 kg

DRUGS (1)
  1. LUPRON DEPOT [Suspect]
     Indication: PRECOCIOUS PUBERTY
     Dates: start: 20100806

REACTIONS (1)
  - WEIGHT INCREASED [None]
